FAERS Safety Report 8078000-2 (Version None)
Quarter: 2012Q1

REPORT INFORMATION
  Report Type: 
  Country: None (occurrence: None)
  Receive Date: 20120127
  Receipt Date: 20110106
  Transmission Date: 20120608
  Serious: No
  Sender: FDA-Public Use
  Company Number: US-ABBOTT-11P-163-0695691-00

PATIENT
  Age: 63 Year
  Sex: Female

DRUGS (14)
  1. CITALOPRAM HYDROBROMIDE [Concomitant]
     Indication: ANXIETY
  2. AMLODIPINE [Concomitant]
     Indication: HYPERTENSION
  3. COZAAR [Concomitant]
     Indication: HYPERTENSION
  4. VITAMIN D [Concomitant]
     Indication: PRODUCT USED FOR UNKNOWN INDICATION
  5. HUMIRA [Suspect]
     Indication: RHEUMATOID ARTHRITIS
     Dates: start: 20090401
  6. LASIX [Concomitant]
     Indication: FLUID RETENTION
  7. FEXOFENADINE HCL [Concomitant]
     Indication: SINUSITIS
     Route: 045
  8. FOLIC ACID [Concomitant]
     Indication: PRODUCT USED FOR UNKNOWN INDICATION
  9. FISH OIL [Concomitant]
     Indication: PRODUCT USED FOR UNKNOWN INDICATION
  10. CALCIUM [Concomitant]
     Indication: PRODUCT USED FOR UNKNOWN INDICATION
  11. MELATONIN [Concomitant]
     Indication: SUPPLEMENTATION THERAPY
  12. ATENOLOL [Concomitant]
     Indication: HYPERTENSION
  13. KLOR-CON M10 [Concomitant]
     Indication: MINERAL SUPPLEMENTATION
  14. OMEPRAZOLE [Concomitant]
     Indication: GASTROOESOPHAGEAL REFLUX DISEASE

REACTIONS (2)
  - DRUG DOSE OMISSION [None]
  - DEPRESSION [None]
